FAERS Safety Report 4750625-9 (Version None)
Quarter: 2005Q3

REPORT INFORMATION
  Report Type: 
  Country: None (occurrence: None)
  Receive Date: 20050823
  Receipt Date: 20050805
  Transmission Date: 20060218
  Serious: Yes (Hospitalization)
  Sender: FDA-Public Use
  Company Number: PHRM2005FR02227

PATIENT
  Age: 85 Year
  Sex: Female
  Weight: 54 kg

DRUGS (8)
  1. TRILEPTAL [Suspect]
     Indication: CONVULSION
     Route: 048
     Dates: start: 20041119, end: 20050516
  2. KEPPRA [Suspect]
     Dosage: 2 G DAILY
     Route: 048
     Dates: start: 20041119, end: 20050516
  3. AUGMENTIN /UNK/ [Concomitant]
  4. MOPRAL [Concomitant]
     Route: 048
  5. SOPROL [Suspect]
     Dosage: 10 MG, QD
     Route: 048
     Dates: start: 20000630, end: 20050516
  6. ZOLOFT [Suspect]
     Route: 048
     Dates: start: 19990630, end: 20050516
  7. TAVANIC [Concomitant]
  8. FRAXIPARINE [Concomitant]

REACTIONS (9)
  - ANTICONVULSANT DRUG LEVEL INCREASED [None]
  - ATRIOVENTRICULAR BLOCK COMPLETE [None]
  - ATRIOVENTRICULAR BLOCK SECOND DEGREE [None]
  - BLOOD CALCIUM DECREASED [None]
  - CIRCULATORY COLLAPSE [None]
  - HYPONATRAEMIA [None]
  - SINOATRIAL BLOCK [None]
  - SYNCOPE [None]
  - VENTRICULAR EXTRASYSTOLES [None]
